FAERS Safety Report 8690828 (Version 2)
Quarter: 2013Q4

REPORT INFORMATION
  Report Type: Spontaneous
  Country: GB (occurrence: GB)
  Receive Date: 20120729
  Receipt Date: 20131105
  Transmission Date: 20140711
  Serious: Yes (Disabling, Other)
  Sender: FDA-Public Use
  Company Number: GB-009507513-1207GBR006884

PATIENT
  Age: 29 Year
  Sex: Female
  Weight: 54.6 kg

DRUGS (1)
  1. ONCOTICE [Suspect]
     Indication: PROPHYLAXIS
     Route: 051
     Dates: start: 201103, end: 201103

REACTIONS (3)
  - Skin lesion [Recovered/Resolved with Sequelae]
  - Scar [Unknown]
  - Pain [Recovered/Resolved with Sequelae]
